FAERS Safety Report 7229273-7 (Version None)
Quarter: 2011Q1

REPORT INFORMATION
  Report Type: 
  Country: None (occurrence: None)
  Receive Date: 20110117
  Receipt Date: 20110107
  Transmission Date: 20110831
  Serious: Yes (Hospitalization)
  Sender: FDA-Public Use
  Company Number: US-TEVA-262599USA

PATIENT
  Sex: Female

DRUGS (2)
  1. REBIF [Suspect]
     Indication: MULTIPLE SCLEROSIS
  2. COPAXONE [Suspect]
     Indication: MULTIPLE SCLEROSIS
     Route: 058
     Dates: start: 20090801, end: 20090903

REACTIONS (7)
  - ASTHENIA [None]
  - INTESTINAL OBSTRUCTION [None]
  - ABDOMINAL PAIN [None]
  - WHITE BLOOD CELL COUNT INCREASED [None]
  - SYNCOPE [None]
  - INTESTINAL MASS [None]
  - GASTROINTESTINAL INFECTION [None]
